FAERS Safety Report 24276754 (Version 2)
Quarter: 2024Q4

REPORT INFORMATION
  Report Type: Spontaneous
  Country: US (occurrence: US)
  Receive Date: 20240903
  Receipt Date: 20241007
  Transmission Date: 20250115
  Serious: Yes (Other)
  Sender: AMGEN
  Company Number: US-AMGEN-USASP2024115846

PATIENT
  Age: 27 Year
  Sex: Female

DRUGS (7)
  1. REPATHA [Suspect]
     Active Substance: EVOLOCUMAB
     Indication: Blood cholesterol abnormal
     Dosage: 420 MILLIGRAM (TWICE MONTHLY)
     Route: 058
     Dates: end: 20220411
  2. INSULIN NOS [Concomitant]
     Active Substance: INSULIN NOS
     Indication: Diabetes mellitus
     Dosage: UNK, QD
     Route: 058
     Dates: start: 20051219
  3. WELLBUTRIN [Concomitant]
     Active Substance: BUPROPION HYDROCHLORIDE
     Indication: Depression
     Dosage: UNK UNK, QD
     Route: 048
  4. MOUNJARO [Concomitant]
     Active Substance: TIRZEPATIDE
     Indication: Weight decreased
     Dosage: UNK UNK, QWK
     Route: 058
  5. VITAMINS [Concomitant]
     Active Substance: VITAMINS
     Dosage: UNK, QD
     Route: 048
  6. LABETALOL [Concomitant]
     Active Substance: LABETALOL
     Dosage: UNK, QD
     Route: 048
  7. PROGESTERONE [Concomitant]
     Active Substance: PROGESTERONE
     Dosage: UNK, QD
     Route: 048

REACTIONS (4)
  - Pre-eclampsia [Recovered/Resolved]
  - Premature delivery [Unknown]
  - Maternal exposure during pregnancy [Unknown]
  - Off label use [Unknown]

NARRATIVE: CASE EVENT DATE: 20230506
